FAERS Safety Report 26139566 (Version 1)
Quarter: 2025Q4

REPORT INFORMATION
  Report Type: Spontaneous
  Country: EU (occurrence: EU)
  Receive Date: 20251210
  Receipt Date: 20251210
  Transmission Date: 20260118
  Serious: Yes (Other)
  Sender: AUROBINDO
  Company Number: EU-AEMPS-1782840

PATIENT
  Age: 64 Year
  Sex: Male

DRUGS (9)
  1. AMOXICILLIN [Suspect]
     Active Substance: AMOXICILLIN
     Indication: Product used for unknown indication
     Dosage: 1 GRAM, 3 TIMES A DAY
     Dates: start: 20251010, end: 20251017
  2. AMLODIPINO CINFA 5 mg COMPRIMIDOS EFG , 30 comprimidos [Concomitant]
     Indication: Product used for unknown indication
     Dosage: 5 MILLIGRAM, ONCE A DAY
     Dates: start: 20250613
  3. QUETIAPINA CINFA 300 mg COMPRIMIDOS RECUBIERTOS CON PELICULA EFG, 60 c [Concomitant]
     Indication: Product used for unknown indication
     Dosage: 300 MILLIGRAM, ONCE A DAY
     Dates: start: 20250211
  4. MONTELUKAST CINFA 10 mg COMPRIMIDOS RECUBIERTOS CON PELICULA EFG, 28 c [Concomitant]
     Indication: Product used for unknown indication
     Dosage: 10 MILLIGRAM, ONCE A DAY
     Dates: start: 20241204
  5. TRILEPTAL 300 mg COMPRIMIDOS RECUBIERTOS CON PELICULA , 100 comprimido [Concomitant]
     Indication: Product used for unknown indication
     Dosage: 300 MILLIGRAM, TWO TIMES A DAY
     Dates: start: 20240603
  6. TRYPTIZOL 25 mg COMPRIMIDOS RECUBIERTOS CON PELICULA, 24 comprimidos [Concomitant]
     Indication: Product used for unknown indication
     Dosage: 12.5 MILLIGRAM, ONCE A DAY
     Dates: start: 20240322
  7. FUROSEMIDE [Concomitant]
     Active Substance: FUROSEMIDE
     Indication: Product used for unknown indication
     Dosage: 60 MILLIGRAM, ONCE A DAY
  8. ATORVASTATINA CINFA 20 mg COMPRIMIDOS RECUBIERTOS CON PELICULA EFG , 2 [Concomitant]
     Indication: Product used for unknown indication
     Dosage: 20 MILLIGRAM, ONCE A DAY
     Dates: start: 20240220
  9. TRIMBOW 87 MICROGRAMOS/5 MICROGRAMOS/9 MICROGRAMOS SOLUCION PARA INHAL [Concomitant]
     Indication: Product used for unknown indication
     Dosage: 2 DOSAGE FORM, TWO TIMES A DAY
     Dates: start: 20240220

REACTIONS (1)
  - Abdominal pain upper [Recovered/Resolved]

NARRATIVE: CASE EVENT DATE: 20251010
